FAERS Safety Report 21836300 (Version 1)
Quarter: 2023Q1

REPORT INFORMATION
  Report Type: Spontaneous
  Country: US (occurrence: US)
  Receive Date: 20230109
  Receipt Date: 20230109
  Transmission Date: 20230418
  Serious: No
  Sender: FDA-Public Use
  Company Number: US-TERSERA THERAPEUTICS LLC-2022TRS001801

PATIENT

DRUGS (4)
  1. PRIALT [Suspect]
     Active Substance: ZICONOTIDE ACETATE
     Indication: Spinal pain
     Dosage: 3.987 MCG, QD
     Route: 037
  2. PRIALT [Suspect]
     Active Substance: ZICONOTIDE ACETATE
     Dosage: 6.004 MCG, QD (CONCENTRATION: 65.7)
     Route: 037
  3. BACLOFEN [Suspect]
     Active Substance: BACLOFEN
     Indication: Spinal pain
     Dosage: 9.966 MCG, QD (CONCENTRATION:1.55 MCG/ML)
     Route: 037
  4. BUPIVACAINE [Suspect]
     Active Substance: BUPIVACAINE
     Indication: Spinal pain
     Dosage: 3.97 MG, QD
     Route: 037

REACTIONS (2)
  - Hypoaesthesia [Recovering/Resolving]
  - Off label use [Unknown]

NARRATIVE: CASE EVENT DATE: 20220428
